FAERS Safety Report 4281540-5 (Version None)
Quarter: 2004Q1

REPORT INFORMATION
  Report Type: 
  Country: None (occurrence: None)
  Receive Date: 20040128
  Receipt Date: 20040114
  Transmission Date: 20041129
  Serious: Yes (Other)
  Sender: FDA-Public Use
  Company Number: 2004194522FR

PATIENT
  Age: 72 Year
  Sex: Male

DRUGS (1)
  1. CELEBREX [Suspect]
     Indication: NECK PAIN

REACTIONS (3)
  - CYTOLYTIC HEPATITIS [None]
  - EXANTHEM [None]
  - INFLAMMATION [None]
